FAERS Safety Report 7433723-0 (Version None)
Quarter: 2011Q2

REPORT INFORMATION
  Report Type: 
  Country: None (occurrence: None)
  Receive Date: 20110424
  Receipt Date: 20110418
  Transmission Date: 20111010
  Serious: Yes (Other)
  Sender: FDA-Public Use
  Company Number: CH-US-EMD SERONO, INC.-7050324

PATIENT
  Sex: Female
  Weight: 52 kg

DRUGS (3)
  1. REBIF [Suspect]
     Indication: MULTIPLE SCLEROSIS
     Route: 058
     Dates: start: 20040101
  2. PONSTAN [Concomitant]
     Indication: PROPHYLAXIS
     Route: 048
     Dates: start: 20040101
  3. DAFALGAN [Concomitant]
     Indication: PROPHYLAXIS
     Route: 048
     Dates: start: 20040101

REACTIONS (4)
  - CENTRAL NERVOUS SYSTEM LESION [None]
  - HAEMATOMA [None]
  - FALL [None]
  - SYNCOPE [None]
